FAERS Safety Report 5672014-5 (Version None)
Quarter: 2008Q1

REPORT INFORMATION
  Report Type: 
  Country: None (occurrence: None)
  Receive Date: 20080314
  Receipt Date: 20071001
  Transmission Date: 20080703
  Serious: Yes (Disabling, Other)
  Sender: FDA-Public Use
  Company Number: 2007US002488

PATIENT
  Age: 62 Year
  Sex: Male

DRUGS (15)
  1. AMBISOME [Suspect]
     Indication: ZYGOMYCOSIS
     Dosage: SEE IMAGE
     Route: 042
     Dates: start: 20070815, end: 20070815
  2. AMBISOME [Suspect]
     Indication: ZYGOMYCOSIS
     Dosage: SEE IMAGE
     Route: 042
     Dates: start: 20070815, end: 20070816
  3. AMBISOME [Suspect]
     Indication: ZYGOMYCOSIS
     Dosage: SEE IMAGE
     Route: 042
     Dates: start: 20070817, end: 20070819
  4. AMBISOME [Suspect]
     Indication: ZYGOMYCOSIS
     Dosage: SEE IMAGE
     Route: 042
     Dates: start: 20070820, end: 20070825
  5. AMBISOME [Suspect]
     Indication: ZYGOMYCOSIS
     Dosage: SEE IMAGE
     Route: 042
     Dates: start: 20070826
  6. MORPHINE SULFATE [Concomitant]
  7. DOLIPRANE [Concomitant]
  8. ZOLPIDEM TARTRATE [Concomitant]
  9. DIAMICRON (GLICLAZIDE) [Concomitant]
  10. HYDROCORTISONE HYDROGEN SUCINATE (HYDROCORTISONE HYDROGEN SUCCINATE) [Concomitant]
  11. POLARAMINE [Concomitant]
  12. DALACINE - PER (CLINDAMYCIN HYDROCHLORIDE) [Concomitant]
  13. OFLOXACIN [Concomitant]
  14. NOXAFIL [Concomitant]
  15. FUCIDINE CAP [Concomitant]

REACTIONS (20)
  - ABSCESS [None]
  - ASTHENIA [None]
  - BACK PAIN [None]
  - BLOOD ALKALINE PHOSPHATASE INCREASED [None]
  - BONE DISORDER [None]
  - BONE MARROW DISORDER [None]
  - DRUG LEVEL BELOW THERAPEUTIC [None]
  - GAMMA-GLUTAMYLTRANSFERASE INCREASED [None]
  - IMMOBILE [None]
  - INFLAMMATION [None]
  - NAUSEA [None]
  - OEDEMA PERIPHERAL [None]
  - RENAL FAILURE ACUTE [None]
  - RESPIRATORY DEPRESSION [None]
  - SCAR [None]
  - SKIN ATROPHY [None]
  - STAPHYLOCOCCAL OSTEOMYELITIS [None]
  - THROMBOCYTOPENIA [None]
  - VOMITING [None]
  - WEIGHT DECREASED [None]
